FAERS Safety Report 11294740 (Version 1)
Quarter: 2015Q3

REPORT INFORMATION
  Report Type: Spontaneous
  Country: US (occurrence: US)
  Receive Date: 20150723
  Receipt Date: 20150723
  Transmission Date: 20151125
  Serious: Yes (Other)
  Sender: FDA-Public Use
  Company Number: PHHY2015US086531

PATIENT
  Age: 68 Year
  Sex: Male

DRUGS (3)
  1. RITUXIMAB [Suspect]
     Active Substance: RITUXIMAB
     Indication: LYMPHOCYTIC LEUKAEMIA
     Route: 065
  2. CYCLOPHOSPHAMIDE. [Suspect]
     Active Substance: CYCLOPHOSPHAMIDE
     Indication: LYMPHOCYTIC LEUKAEMIA
     Route: 065
  3. FLUDARABINE [Suspect]
     Active Substance: FLUDARABINE PHOSPHATE
     Indication: LYMPHOCYTIC LEUKAEMIA
     Route: 065

REACTIONS (9)
  - Weight decreased [Unknown]
  - Pyrexia [Unknown]
  - Hodgkin^s disease [Recovering/Resolving]
  - Septic shock [Unknown]
  - Renal failure [Unknown]
  - Night sweats [Unknown]
  - Fatigue [Unknown]
  - Epstein-Barr viraemia [Recovering/Resolving]
  - Hypogammaglobulinaemia [Unknown]
